FAERS Safety Report 5117189-1 (Version None)
Quarter: 2006Q3

REPORT INFORMATION
  Report Type: 
  Country: None (occurrence: None)
  Receive Date: 20060926
  Receipt Date: 20060913
  Transmission Date: 20061208
  Serious: Yes (Other)
  Sender: FDA-Public Use
  Company Number: 2006111041

PATIENT
  Age: 59 Year
  Sex: Female
  Weight: 78.0187 kg

DRUGS (6)
  1. NEURONTIN [Suspect]
     Indication: PERIPHERAL SENSORY NEUROPATHY
  2. LYRICA [Suspect]
     Indication: PERIPHERAL SENSORY NEUROPATHY
     Dosage: 300 MG (100 MG, 3 IN 1 D);
     Dates: start: 20060101
  3. PERCOCET [Suspect]
     Indication: PAIN
     Dosage: (1 D)
  4. SYNTHROID [Concomitant]
  5. PREVACID [Concomitant]
  6. PEPCID [Concomitant]

REACTIONS (6)
  - FEELING ABNORMAL [None]
  - INTRACRANIAL ANEURYSM [None]
  - INTRACRANIAL HYPOTENSION [None]
  - PHARMACEUTICAL PRODUCT COMPLAINT [None]
  - POST PROCEDURAL COMPLICATION [None]
  - SURGICAL PROCEDURE REPEATED [None]
